FAERS Safety Report 5061864-4 (Version None)
Quarter: 2006Q3

REPORT INFORMATION
  Report Type: 
  Country: None (occurrence: None)
  Receive Date: 20060703
  Receipt Date: 20060206
  Transmission Date: 20061208
  Serious: No
  Sender: FDA-Public Use
  Company Number: 2006S1001179

PATIENT
  Age: 59 Year
  Sex: Male

DRUGS (9)
  1. CLOZAPINE [Suspect]
     Indication: SCHIZOPHRENIA, UNDIFFERENTIATED TYPE
     Dosage: 200 MG;TID;ORAL
     Route: 048
     Dates: start: 20010601
  2. POTASSIUM CHLORIDE [Concomitant]
  3. OLANZAPINE [Concomitant]
  4. FUROSEMIDE [Concomitant]
  5. ATORVASTATIN CALCIUM [Concomitant]
  6. VALPROATE SODIUM [Concomitant]
  7. DIGOXIN [Concomitant]
  8. FLUPHENAZINE HCL [Concomitant]
  9. ALLOPURINOL [Concomitant]

REACTIONS (1)
  - GRANULOCYTOPENIA [None]
